FAERS Safety Report 4728752-1 (Version None)
Quarter: 2005Q3

REPORT INFORMATION
  Report Type: 
  Country: None (occurrence: None)
  Receive Date: 20050729
  Receipt Date: 20050418
  Transmission Date: 20060218
  Serious: Yes (Death)
  Sender: FDA-Public Use
  Company Number: PL-GLAXOSMITHKLINE-B0378293A

PATIENT
  Sex: Male

DRUGS (15)
  1. TOPOTECAN [Suspect]
     Indication: NON-SMALL CELL LUNG CANCER
     Dosage: 3.5MGM2 SEE DOSAGE TEXT
     Route: 042
     Dates: start: 20050322, end: 20050330
  2. TAXOTERE [Suspect]
     Indication: NON-SMALL CELL LUNG CANCER
     Dosage: 30MGM2 SEE DOSAGE TEXT
     Route: 042
     Dates: start: 20050322, end: 20050330
  3. DIGOXIN [Concomitant]
     Indication: CARDIAC FAILURE
  4. FUROSEMIDE [Concomitant]
     Indication: CARDIAC FAILURE
  5. SEREVENT [Concomitant]
  6. ATROVENT [Concomitant]
  7. MORPHINE [Concomitant]
  8. LACTULOSE [Concomitant]
  9. KETONAL [Concomitant]
  10. FLIXOTIDE [Concomitant]
  11. DOXYCYCLINUM [Concomitant]
  12. KALIPOZ [Concomitant]
  13. ENCORTON [Concomitant]
  14. HELICID [Concomitant]
  15. AMOXICLAV [Concomitant]

REACTIONS (1)
  - SHOCK [None]
